FAERS Safety Report 9426089 (Version 2)
Quarter: 2013Q3

REPORT INFORMATION
  Report Type: Spontaneous
  Country: ES (occurrence: ES)
  Receive Date: 20130730
  Receipt Date: 20130816
  Transmission Date: 20140515
  Serious: Yes (Hospitalization)
  Sender: FDA-Public Use
  Company Number: 2013SP005549

PATIENT
  Age: 76 Year
  Sex: Female

DRUGS (4)
  1. PANTOPRAZOLE [Suspect]
     Indication: PRODUCT USED FOR UNKNOWN INDICATION
  2. VANCOMYCIN [Suspect]
     Indication: INFECTION
  3. AMIKACIN [Suspect]
     Indication: INFECTION
  4. ACICLOVIR [Suspect]
     Indication: INFECTION

REACTIONS (6)
  - Hypomagnesaemia [Recovered/Resolved]
  - Back pain [Recovered/Resolved]
  - Tremor [Recovered/Resolved]
  - Grand mal convulsion [Recovered/Resolved]
  - Muscular weakness [Recovered/Resolved]
  - Irritability [Recovered/Resolved]
